FAERS Safety Report 11379397 (Version 1)
Quarter: 2015Q3

REPORT INFORMATION
  Report Type: Spontaneous
  Country: US (occurrence: None)
  Receive Date: 20150813
  Receipt Date: 20150813
  Transmission Date: 20151125
  Serious: Yes (Hospitalization, Disabling)
  Sender: FDA-Public Use
  Company Number: None

PATIENT
  Age: 52 Year
  Sex: Male
  Weight: 113.4 kg

DRUGS (6)
  1. RISPERDAL [Suspect]
     Active Substance: RISPERIDONE
     Indication: SCHIZOAFFECTIVE DISORDER
     Dosage: 3MG 2XDAY?2 EACH ?MORN ?BEDTIME?BY MOUTH + DISSOLVING
     Route: 048
     Dates: start: 20140901
  2. LYRICA [Concomitant]
     Active Substance: PREGABALIN
  3. RISPERDAL [Suspect]
     Active Substance: RISPERIDONE
     Indication: DEPRESSION
     Dosage: 3MG 2XDAY?2 EACH ?MORN ?BEDTIME?BY MOUTH + DISSOLVING
     Route: 048
     Dates: start: 20140901
  4. CYMBALTA [Concomitant]
     Active Substance: DULOXETINE HYDROCHLORIDE
  5. SEROQUEL [Concomitant]
     Active Substance: QUETIAPINE FUMARATE
  6. RISPERDAL [Concomitant]
     Active Substance: RISPERIDONE

REACTIONS (3)
  - Contusion [None]
  - Tardive dyskinesia [None]
  - Weight increased [None]

NARRATIVE: CASE EVENT DATE: 20140901
